FAERS Safety Report 16656198 (Version 1)
Quarter: 2019Q3

REPORT INFORMATION
  Report Type: Report from Study
  Country: IR (occurrence: IR)
  Receive Date: 20190801
  Receipt Date: 20190801
  Transmission Date: 20191004
  Serious: Yes (Death, Hospitalization, Other)
  Sender: FDA-Public Use
  Company Number: IR-MYLANLABS-2019M1071080

PATIENT
  Age: 61 Year
  Sex: Male

DRUGS (2)
  1. FOLATE [Concomitant]
     Active Substance: FOLATE SODIUM
     Indication: SUPPLEMENTATION THERAPY
     Route: 065
  2. METHOTREXATE. [Suspect]
     Active Substance: METHOTREXATE
     Indication: RHEUMATOID ARTHRITIS
     Route: 065

REACTIONS (7)
  - Anaemia [Unknown]
  - Mucosal toxicity [Unknown]
  - Toxicity to various agents [Fatal]
  - Pancytopenia [Fatal]
  - Skin lesion [Unknown]
  - Sepsis [Fatal]
  - Loss of consciousness [Unknown]
